FAERS Safety Report 5228395-X (Version None)
Quarter: 2007Q1

REPORT INFORMATION
  Report Type: 
  Country: None (occurrence: None)
  Receive Date: 20070205
  Receipt Date: 20070123
  Transmission Date: 20070707
  Serious: Yes (Hospitalization, Other)
  Sender: FDA-Public Use
  Company Number: PHBS2006CH05165

PATIENT
  Age: 73 Year
  Sex: Male

DRUGS (6)
  1. AREDIA [Suspect]
     Indication: MULTIPLE MYELOMA
     Dosage: 90 MG, QMO
     Route: 042
     Dates: start: 20020101, end: 20030501
  2. ZOMETA [Suspect]
     Indication: MULTIPLE MYELOMA
     Dosage: 4 MG, QMO
     Route: 042
     Dates: start: 20030601
  3. ALKERAN [Concomitant]
     Dosage: 18 MG/D
     Route: 042
     Dates: start: 20050306, end: 20051208
  4. PREDNISONE [Concomitant]
     Dosage: 100 MG/D
     Dates: start: 20050306, end: 20051208
  5. CHEMOTHERAPEUTICS,OTHER [Concomitant]
     Dates: start: 20051205
  6. CORTICOSTEROIDS [Concomitant]
     Route: 065

REACTIONS (6)
  - BONE DISORDER [None]
  - BONE TRIMMING [None]
  - DENTAL TREATMENT [None]
  - FISTULA [None]
  - OSTEONECROSIS [None]
  - TOOTH EXTRACTION [None]
